APPROVED DRUG PRODUCT: CYONANZ
Active Ingredient: ETHINYL ESTRADIOL; NORETHINDRONE
Strength: 0.035MG;0.5MG
Dosage Form/Route: TABLET;ORAL-28
Application: A207055 | Product #001 | TE Code: AB
Applicant: AUROBINDO PHARMA LTD
Approved: Oct 21, 2016 | RLD: No | RS: No | Type: RX